FAERS Safety Report 21812290 (Version 1)
Quarter: 2023Q1

REPORT INFORMATION
  Report Type: Spontaneous
  Country: US (occurrence: None)
  Receive Date: 20230103
  Receipt Date: 20230103
  Transmission Date: 20230418
  Serious: No
  Sender: FDA-Public Use
  Company Number: None

PATIENT
  Age: 75 Year
  Sex: Male

DRUGS (6)
  1. REPATHA [Suspect]
     Active Substance: EVOLOCUMAB
     Indication: Hyperlipidaemia
     Dosage: OTHER FREQUENCY : BI-MONTHLY;?
     Route: 058
     Dates: start: 20211013, end: 20221208
  2. HYDRALAZINE [Concomitant]
     Active Substance: HYDRALAZINE HYDROCHLORIDE
  3. LOSARTAN [Concomitant]
     Active Substance: LOSARTAN
  4. AMLODIPINE [Concomitant]
     Active Substance: AMLODIPINE BESYLATE
  5. PREGABALIN [Concomitant]
     Active Substance: PREGABALIN
  6. MELOXICAM [Concomitant]
     Active Substance: MELOXICAM

REACTIONS (2)
  - Arthralgia [None]
  - Sinus disorder [None]

NARRATIVE: CASE EVENT DATE: 20230102
